FAERS Safety Report 6754589-8 (Version None)
Quarter: 2010Q2

REPORT INFORMATION
  Report Type: 
  Country: None (occurrence: None)
  Receive Date: 20100601
  Receipt Date: 20100525
  Transmission Date: 20101027
  Serious: Yes (Hospitalization, Other)
  Sender: FDA-Public Use
  Company Number: 2009-198554-NL

PATIENT
  Age: 31 Year
  Sex: Female
  Weight: 90.7194 kg

DRUGS (12)
  1. NUVARING [Suspect]
     Indication: CONTRACEPTION
     Dosage: 1 DF; Q3W; VAG
     Route: 067
     Dates: start: 20040101, end: 20080303
  2. ALLEGRA [Concomitant]
  3. GYNAZOLE [Concomitant]
  4. CLINDESSE [Concomitant]
  5. OXYCODONE HCL AND ACETAMINOPHEN [Concomitant]
  6. PROMETHAZINE [Concomitant]
  7. GLIMEPIRIDE [Concomitant]
  8. FEXOFENADINE [Concomitant]
  9. FLUTICASONE PROPIONATE [Concomitant]
  10. XOPENEX [Concomitant]
  11. METRONIDAZOLE [Concomitant]
  12. ANAPROX DS [Concomitant]

REACTIONS (17)
  - DRUG EXPOSURE DURING PREGNANCY [None]
  - FALL [None]
  - FLUID OVERLOAD [None]
  - GLYCOSYLATED HAEMOGLOBIN INCREASED [None]
  - HAEMODYNAMIC INSTABILITY [None]
  - HYPERCOAGULATION [None]
  - HYPERHIDROSIS [None]
  - INTRA-UTERINE DEATH [None]
  - LEFT VENTRICULAR HYPERTROPHY [None]
  - LOSS OF CONSCIOUSNESS [None]
  - PALPITATIONS [None]
  - PREMATURE RUPTURE OF MEMBRANES [None]
  - PULMONARY EMBOLISM [None]
  - RETAINED PLACENTA OR MEMBRANES [None]
  - SEASONAL ALLERGY [None]
  - VAGINITIS BACTERIAL [None]
  - VOMITING [None]
